FAERS Safety Report 20387529 (Version 1)
Quarter: 2022Q1

REPORT INFORMATION
  Report Type: Spontaneous
  Country: US (occurrence: US)
  Receive Date: 20220127
  Receipt Date: 20220127
  Transmission Date: 20220424
  Serious: No
  Sender: FDA-Public Use
  Company Number: US-ALLERGAN-2134027US

PATIENT
  Age: 78 Year
  Sex: Female

DRUGS (5)
  1. BOTOX [Suspect]
     Active Substance: ONABOTULINUMTOXINA
     Indication: Migraine
     Dosage: 25 UNITS, SINGLE
     Dates: start: 20210929, end: 20210929
  2. BOTOX [Suspect]
     Active Substance: ONABOTULINUMTOXINA
     Indication: Neck pain
     Dosage: 50 UNITS, SINGLE
     Dates: start: 20210929, end: 20210929
  3. BOTOX [Suspect]
     Active Substance: ONABOTULINUMTOXINA
     Indication: Back pain
     Dosage: 50 UNITS, SINGLE
     Dates: start: 20210929, end: 20210929
  4. BOTOX [Suspect]
     Active Substance: ONABOTULINUMTOXINA
     Indication: Torticollis
     Dosage: 75 UNITS, SINGLE
     Dates: start: 20210929, end: 20210929
  5. BOTOX [Suspect]
     Active Substance: ONABOTULINUMTOXINA
     Dosage: UNK
     Dates: start: 20210705, end: 20210705

REACTIONS (4)
  - Off label use [Unknown]
  - Product preparation error [Unknown]
  - Pruritus [Recovering/Resolving]
  - Urticaria [Recovering/Resolving]

NARRATIVE: CASE EVENT DATE: 20210929
